FAERS Safety Report 17967176 (Version 1)
Quarter: 2020Q3

REPORT INFORMATION
  Report Type: Spontaneous
  Country: US (occurrence: US)
  Receive Date: 20200701
  Receipt Date: 20200701
  Transmission Date: 20201103
  Serious: Yes (Other)
  Sender: FDA-Public Use
  Company Number: US-BAYER-2020-124124

PATIENT
  Sex: Female

DRUGS (9)
  1. HUMIRA [Suspect]
     Active Substance: ADALIMUMAB
  2. PREDNISONE. [Suspect]
     Active Substance: PREDNISONE
  3. REMICADE [Suspect]
     Active Substance: INFLIXIMAB
  4. ENBREL [Suspect]
     Active Substance: ETANERCEPT
  5. XELJANZ [Suspect]
     Active Substance: TOFACITINIB CITRATE
  6. ALEVE [Suspect]
     Active Substance: NAPROXEN SODIUM
  7. TALTZ [Suspect]
     Active Substance: IXEKIZUMAB
  8. IBUPROFEN. [Suspect]
     Active Substance: IBUPROFEN
  9. METHOTREXATE. [Suspect]
     Active Substance: METHOTREXATE

REACTIONS (1)
  - Deafness [None]
